FAERS Safety Report 8370287-1 (Version None)
Quarter: 2012Q2

REPORT INFORMATION
  Report Type: 
  Country: None (occurrence: None)
  Receive Date: 20120518
  Receipt Date: 20110822
  Transmission Date: 20120825
  Serious: No
  Sender: FDA-Public Use
  Company Number: US-ASTRAZENECA-2011SE59057

PATIENT
  Sex: Male

DRUGS (5)
  1. PRILOSEC OTC [Suspect]
     Indication: DYSPHONIA
     Route: 048
     Dates: start: 20110816, end: 20110822
  2. VITAMINS NOS [Concomitant]
     Dosage: UNKNOWN
  3. ASPIRIN [Concomitant]
     Dosage: UNKNOWN
  4. LISINOPRIL + HYDROCLOROTIAZIDE [Concomitant]
     Dosage: UNKNOWN
  5. PRILOSEC OTC [Suspect]
     Indication: ERUCTATION
     Route: 048
     Dates: start: 20110816, end: 20110822

REACTIONS (1)
  - FAECES DISCOLOURED [None]
